FAERS Safety Report 5509516-8 (Version None)
Quarter: 2007Q4

REPORT INFORMATION
  Report Type: 
  Country: None (occurrence: None)
  Receive Date: 20071107
  Receipt Date: 20071026
  Transmission Date: 20080405
  Serious: Yes (Other)
  Sender: FDA-Public Use
  Company Number: US-PFIZER INC-2007091608

PATIENT
  Sex: Female
  Weight: 70.454 kg

DRUGS (4)
  1. CHANTIX [Suspect]
     Indication: SMOKING CESSATION THERAPY
     Dates: start: 20070101, end: 20071001
  2. ACETYLSALICYLIC ACID SRT [Suspect]
     Indication: CARDIAC DISORDER
  3. ZETIA [Concomitant]
     Indication: BLOOD CHOLESTEROL INCREASED
  4. FORADIL [Concomitant]
     Indication: EMPHYSEMA

REACTIONS (9)
  - ABNORMAL SENSATION IN EYE [None]
  - DYSPNOEA [None]
  - EMOTIONAL DISORDER [None]
  - EYE PAIN [None]
  - NERVOUSNESS [None]
  - RETINAL HAEMORRHAGE [None]
  - RETINAL TEAR [None]
  - VISUAL DISTURBANCE [None]
  - VITREOUS FLOATERS [None]
